FAERS Safety Report 9158427 (Version 1)
Quarter: 2013Q1

REPORT INFORMATION
  Report Type: Spontaneous
  Country: US (occurrence: US)
  Receive Date: 20130312
  Receipt Date: 20130312
  Transmission Date: 20140127
  Serious: No
  Sender: FDA-Public Use
  Company Number: US-BAUSCH-2012BL000764

PATIENT
  Age: 38 Year
  Sex: Female

DRUGS (1)
  1. DESMOPRESSIN ACETATE [Suspect]
     Indication: DIABETES INSIPIDUS
     Dosage: DAILY DOSE: 2 SPRAY
     Route: 045
     Dates: start: 201111, end: 201112

REACTIONS (3)
  - Blood sodium decreased [Unknown]
  - Pollakiuria [Recovered/Resolved]
  - Salt craving [Recovered/Resolved]
